FAERS Safety Report 7576913-9 (Version None)
Quarter: 2011Q2

REPORT INFORMATION
  Report Type: 
  Country: None (occurrence: None)
  Receive Date: 20110628
  Receipt Date: 20090930
  Transmission Date: 20111010
  Serious: Yes (Other)
  Sender: FDA-Public Use
  Company Number: US-BAYER-200934589NA

PATIENT
  Age: 72 Year
  Sex: Female
  Weight: 56 kg

DRUGS (24)
  1. HEPARIN [Concomitant]
     Dosage: 46000 U
     Route: 042
     Dates: start: 20020102, end: 20020102
  2. INSULIN [Concomitant]
     Dosage: UNK
     Route: 042
     Dates: start: 20020102, end: 20020102
  3. VERSED [Concomitant]
     Dosage: UNK
     Route: 042
     Dates: start: 20020102, end: 20020102
  4. TRASYLOL [Suspect]
     Dosage: 200 ML OF LOADING DOSE
     Route: 042
     Dates: start: 20020102, end: 20020102
  5. DICYCLOMINE [Concomitant]
     Dosage: 20 MG BEFORE MEALS
     Route: 048
  6. FENTANYL [Concomitant]
     Dosage: UNK
     Route: 042
     Dates: start: 20020102, end: 20020102
  7. PANCURONIUM [Concomitant]
     Dosage: UNK
     Route: 042
     Dates: start: 20020102, end: 20020102
  8. SUCCINYLCHOLINE CHLORIDE [Concomitant]
     Dosage: UNK
     Route: 042
     Dates: start: 20020102, end: 20020102
  9. ISOFLURANE [Concomitant]
     Dosage: INHALATION
  10. ALTACE [Concomitant]
     Dosage: 2.5 MG, QD
     Route: 048
  11. ROCURONIUM BROMIDE [Concomitant]
     Dosage: UNK
     Route: 042
     Dates: start: 20020102, end: 20020102
  12. PHENYLEPHRINE HCL [Concomitant]
     Dosage: UNK
     Route: 042
     Dates: start: 20020102, end: 20020102
  13. PROSTIGMIN BROMIDE [Concomitant]
     Dosage: UNK
     Route: 042
     Dates: start: 20020102, end: 20020102
  14. RED BLOOD CELLS [Concomitant]
     Dosage: 1 U, ONCE
     Route: 042
  15. TRASYLOL [Suspect]
     Indication: CORONARY ARTERY BYPASS
     Dosage: 1 ML, ONCE
     Route: 042
     Dates: start: 20020102, end: 20020102
  16. LIPITOR [Concomitant]
     Dosage: 40 MG, QD
     Route: 048
  17. ASPIRIN [Concomitant]
     Dosage: 81 MG, QD
     Route: 048
  18. CEFUROXIME [Concomitant]
     Dosage: UNK
     Route: 042
     Dates: start: 20020102, end: 20020102
  19. ISOSORBIDE [Concomitant]
     Dosage: 4 MG, QD
     Route: 048
  20. TOPROL-XL [Concomitant]
     Dosage: 50 MG, QD
     Route: 048
  21. TRAZODONE HCL [Concomitant]
     Dosage: 100 MG, QD
     Route: 048
  22. ADENOSINE [Concomitant]
     Dosage: UNK
     Route: 042
     Dates: start: 20020102, end: 20020102
  23. PLATELETS [Concomitant]
     Dosage: 62000 U, ONCE
     Route: 042
     Dates: start: 20020106
  24. TRASYLOL [Suspect]
     Dosage: 50 ML/HR INFUSION
     Route: 042
     Dates: start: 20020102, end: 20020102

REACTIONS (5)
  - PAIN [None]
  - RENAL FAILURE [None]
  - INJURY [None]
  - UNEVALUABLE EVENT [None]
  - RENAL FAILURE ACUTE [None]
